FAERS Safety Report 7246168-3 (Version None)
Quarter: 2011Q1

REPORT INFORMATION
  Report Type: 
  Country: None (occurrence: None)
  Receive Date: 20110126
  Receipt Date: 20110119
  Transmission Date: 20110831
  Serious: Yes (Disabling, Congenital Anomaly)
  Sender: FDA-Public Use
  Company Number: A0908805B

PATIENT
  Sex: Male

DRUGS (1)
  1. PAXIL [Suspect]
     Dates: start: 19950101

REACTIONS (4)
  - BRAIN INJURY [None]
  - DRUG EXPOSURE DURING PREGNANCY [None]
  - CONVULSION [None]
  - ATTENTION DEFICIT/HYPERACTIVITY DISORDER [None]
